FAERS Safety Report 6829350-6 (Version None)
Quarter: 2010Q3

REPORT INFORMATION
  Report Type: 
  Country: None (occurrence: None)
  Receive Date: 20100709
  Receipt Date: 20070302
  Transmission Date: 20110219
  Serious: No
  Sender: FDA-Public Use
  Company Number: US-PFIZER INC-2007017471

PATIENT
  Sex: Female

DRUGS (6)
  1. CHANTIX [Suspect]
     Dates: start: 20070201
  2. LITHIUM CARBONATE [Concomitant]
  3. WELLBUTRIN [Concomitant]
  4. EFFEXOR [Concomitant]
  5. ABILIFY [Concomitant]
  6. KLONOPIN [Concomitant]

REACTIONS (1)
  - MENSTRUATION DELAYED [None]
